FAERS Safety Report 23676962 (Version 3)
Quarter: 2024Q2

REPORT INFORMATION
  Report Type: Spontaneous
  Country: US (occurrence: US)
  Receive Date: 20240327
  Receipt Date: 20240523
  Transmission Date: 20240716
  Serious: No
  Sender: FDA-Public Use
  Company Number: US-BRISTOL-MYERS SQUIBB COMPANY-2024-048748

PATIENT
  Age: 75 Year
  Sex: Male
  Weight: 100.7 kg

DRUGS (1)
  1. REVLIMID [Suspect]
     Active Substance: LENALIDOMIDE
     Indication: Plasma cell myeloma
     Route: 048

REACTIONS (5)
  - Feeling abnormal [Unknown]
  - Acne [Recovering/Resolving]
  - Skin disorder [Recovering/Resolving]
  - Back pain [Unknown]
  - Rosacea [Unknown]
